FAERS Safety Report 17039808 (Version 1)
Quarter: 2019Q4

REPORT INFORMATION
  Report Type: Report from Study
  Country: None (occurrence: US)
  Receive Date: 20191116
  Receipt Date: 20191116
  Transmission Date: 20200122
  Serious: Yes (Other)
  Sender: FDA-Public Use
  Company Number: US-ABBVIE-19K-163-2992172-00

PATIENT
  Sex: Female
  Weight: 72.64 kg

DRUGS (2)
  1. HUMIRA [Suspect]
     Active Substance: ADALIMUMAB
     Indication: PSORIASIS
     Dosage: CITRATE FREE
     Route: 058
     Dates: start: 201909, end: 20191105
  2. HUMIRA [Suspect]
     Active Substance: ADALIMUMAB
     Indication: PSORIASIS

REACTIONS (6)
  - Skin laceration [Unknown]
  - Psoriasis [Not Recovered/Not Resolved]
  - Skin hypertrophy [Unknown]
  - Rash pruritic [Unknown]
  - Haemorrhage [Unknown]
  - Rash papular [Unknown]

NARRATIVE: CASE EVENT DATE: 2019
